FAERS Safety Report 15155570 (Version 1)
Quarter: 2018Q3

REPORT INFORMATION
  Report Type: Spontaneous
  Country: DE (occurrence: DE)
  Receive Date: 20180717
  Receipt Date: 20180717
  Transmission Date: 20181010
  Serious: Yes (Hospitalization)
  Sender: FDA-Public Use
  Company Number: PHHY2018DE042979

PATIENT
  Age: 49 Year
  Sex: Female

DRUGS (7)
  1. LEVOTHYROXINE. [Concomitant]
     Active Substance: LEVOTHYROXINE
     Indication: PRODUCT USED FOR UNKNOWN INDICATION
     Dosage: 100 UG, QD ((1?0?0?0) IN THE MORNING)
     Route: 065
  2. LAMOTRIGINE. [Suspect]
     Active Substance: LAMOTRIGINE
     Indication: EPILEPSY
     Dosage: 100 MG, TID (1?1?1?0)
     Route: 065
  3. MIRTAZAPINE. [Suspect]
     Active Substance: MIRTAZAPINE
     Indication: DEPRESSION
     Dosage: 15 MG, QD ((0?0?1) AT NIGHT)
     Route: 065
  4. MILNACIPRAN [Suspect]
     Active Substance: MILNACIPRAN
     Indication: PRODUCT USED FOR UNKNOWN INDICATION
     Dosage: 50 MG, BID
     Route: 048
  5. ESCITALOPRAM [Suspect]
     Active Substance: ESCITALOPRAM OXALATE
     Indication: DEPRESSION
     Dosage: 20 MG, QD ((20MG?0MG?0MG?0MG) IN THE MORNING)
     Route: 065
     Dates: start: 2014
  6. MIRTAZAPINE. [Suspect]
     Active Substance: MIRTAZAPINE
     Dosage: 45 MG, QD (AT NIGHT)
     Route: 065
  7. MILNACIPRAN [Suspect]
     Active Substance: MILNACIPRAN
     Dosage: 200 MG, QD
     Route: 048

REACTIONS (9)
  - Normocytic anaemia [Unknown]
  - Disturbance in attention [Unknown]
  - Gamma-glutamyltransferase increased [Recovered/Resolved]
  - Drug ineffective [Recovered/Resolved]
  - Off label use [Unknown]
  - Alanine aminotransferase increased [Recovered/Resolved]
  - Depressive symptom [Recovered/Resolved]
  - Listless [Unknown]
  - Aspartate aminotransferase increased [Recovered/Resolved]
